FAERS Safety Report 6059367-3 (Version None)
Quarter: 2009Q1

REPORT INFORMATION
  Report Type: 
  Country: None (occurrence: None)
  Receive Date: 20090130
  Receipt Date: 20090122
  Transmission Date: 20090719
  Serious: Yes (Hospitalization, Other)
  Sender: FDA-Public Use
  Company Number: CH-SANOFI-SYNTHELABO-F01200900076

PATIENT
  Sex: Male

DRUGS (6)
  1. IRINOTECAN HCL [Suspect]
     Route: 041
  2. CETUXIMAB [Suspect]
     Route: 041
  3. BEVACIZUMAB [Suspect]
     Dosage: DAY 1 AND 15
     Route: 041
  4. FLUOROURACIL [Suspect]
     Route: 042
  5. LEUCOVORIN [Suspect]
     Dosage: DAY 1,8, 15 AND 22
     Route: 041
  6. OXALIPLATIN [Suspect]
     Indication: COLORECTAL CANCER
     Dosage: DAY 1 AND 15
     Route: 041

REACTIONS (6)
  - ABDOMINAL PAIN [None]
  - BLADDER PAIN [None]
  - GASTROINTESTINAL PERFORATION [None]
  - INFECTION [None]
  - PLEURAL EFFUSION [None]
  - PYREXIA [None]
